FAERS Safety Report 24911029 (Version 1)
Quarter: 2025Q1

REPORT INFORMATION
  Report Type: Spontaneous
  Country: PT (occurrence: PT)
  Receive Date: 20250131
  Receipt Date: 20250131
  Transmission Date: 20250408
  Serious: Yes (Hospitalization, Other)
  Sender: PFIZER
  Company Number: PT-MLMSERVICE-20250122-PI370022-00270-1

PATIENT
  Age: 74 Year
  Sex: Male

DRUGS (14)
  1. METHYLPREDNISOLONE SODIUM SUCCINATE [Suspect]
     Active Substance: METHYLPREDNISOLONE SODIUM SUCCINATE
     Indication: VEXAS syndrome
     Dosage: 1 G, DAILY DURING THREE DAYS (PULSE THERAPY)
     Route: 042
     Dates: start: 202208, end: 202208
  2. PREDNISOLONE [Suspect]
     Active Substance: PREDNISOLONE
     Indication: VEXAS syndrome
     Dosage: 15 MG, 1X/DAY (FOR 3 WEEKS BY HIS GENERAL PRACTITIONER)
     Dates: start: 202101, end: 2022
  3. PREDNISOLONE [Suspect]
     Active Substance: PREDNISOLONE
     Dosage: 7.5 MG, 1X/DAY
     Dates: start: 2022
  4. PREDNISOLONE [Suspect]
     Active Substance: PREDNISOLONE
     Dosage: 20 MG, 1X/DAY
     Dates: start: 202204, end: 2022
  5. PREDNISOLONE [Suspect]
     Active Substance: PREDNISOLONE
     Dosage: 12.5 MG, 1X/DAY
     Dates: start: 2022, end: 2022
  6. PREDNISOLONE [Suspect]
     Active Substance: PREDNISOLONE
     Dosage: 80 MG, 1X/DAY
     Dates: start: 202208
  7. PREDNISOLONE [Suspect]
     Active Substance: PREDNISOLONE
     Dosage: 40 MG, 1X/DAY
     Dates: start: 202206
  8. PREDNISOLONE [Suspect]
     Active Substance: PREDNISOLONE
     Dates: start: 2022, end: 2022
  9. DARBEPOETIN ALFA [Concomitant]
     Active Substance: DARBEPOETIN ALFA
     Indication: VEXAS syndrome
     Dosage: UNK, WEEKLY (MAXIMUM 300 MG)
     Dates: start: 202211, end: 202307
  10. DICLOFENAC [Concomitant]
     Active Substance: DICLOFENAC
     Dosage: 50 MG, 2X/DAY (50-75 MG TWICE DAILY)
  11. DICLOFENAC [Concomitant]
     Active Substance: DICLOFENAC
     Dosage: 75 MG, 2X/DAY (50-75 MG TWICE DAILY)
  12. RIVAROXABAN [Concomitant]
     Active Substance: RIVAROXABAN
     Indication: Thrombosis prophylaxis
  13. RUXOLITINIB [Concomitant]
     Active Substance: RUXOLITINIB
     Indication: VEXAS syndrome
     Dosage: 15 MG, 2X/DAY
     Dates: start: 202208
  14. RUXOLITINIB [Concomitant]
     Active Substance: RUXOLITINIB
     Dosage: UNK, 2X/DAY (DOSE UP TO 25 MG TWICE DAILY )
     Dates: end: 202302

REACTIONS (8)
  - Diverticulitis [Unknown]
  - Tooth abscess [Unknown]
  - Respiratory syncytial virus infection [Unknown]
  - Oral candidiasis [Unknown]
  - Pneumonia [Unknown]
  - Viral upper respiratory tract infection [Unknown]
  - Osteoporotic fracture [Unknown]
  - Off label use [Unknown]

NARRATIVE: CASE EVENT DATE: 20220801
